FAERS Safety Report 8811725 (Version 3)
Quarter: 2012Q4

REPORT INFORMATION
  Report Type: 
  Country: US (occurrence: US)
  Receive Date: 20120927
  Receipt Date: 20121130
  Transmission Date: 20130627
  Serious: Yes (Hospitalization, Other)
  Sender: FDA-Public Use
  Company Number: PHEH2012US018729

PATIENT
  Sex: Female

DRUGS (13)
  1. EXELON PATCH [Suspect]
     Route: 062
  2. SINGULAIR [Concomitant]
  3. ISOSORBIDE MONONITRATE [Concomitant]
  4. FUROSEMIDE [Concomitant]
  5. OMEPRAZOLE [Concomitant]
  6. POLYETHYLENE GLYCOL [Concomitant]
  7. AGGRENOX [Concomitant]
  8. LOSARTAN [Concomitant]
  9. DOXYCYCLINE [Concomitant]
  10. PRAVASTATIN [Concomitant]
  11. ISOSORBIDE [Concomitant]
  12. HYDROCODIN [Concomitant]
  13. CHLORDIAZEPOXIDE [Concomitant]

REACTIONS (5)
  - Pneumonia [Unknown]
  - Arterial occlusive disease [Unknown]
  - Cerebrovascular accident [Unknown]
  - Memory impairment [Unknown]
  - Arthritis [Unknown]
